FAERS Safety Report 16260765 (Version 1)
Quarter: 2019Q2

REPORT INFORMATION
  Report Type: Report from Study
  Country: US (occurrence: US)
  Receive Date: 20190501
  Receipt Date: 20190501
  Transmission Date: 20190711
  Serious: Yes (Other)
  Sender: FDA-Public Use
  Company Number: US-ELI_LILLY_AND_COMPANY-US201904013449

PATIENT

DRUGS (3)
  1. VANTICTUMAB [Suspect]
     Active Substance: VANTICTUMAB
     Indication: PANCREATIC CARCINOMA METASTATIC
     Dosage: 5 MG/KG, Q4W
     Route: 065
  2. GEMCITABINE HYDROCHLORIDE. [Suspect]
     Active Substance: GEMCITABINE HYDROCHLORIDE
     Indication: PANCREATIC CARCINOMA METASTATIC
     Dosage: STANDARD DOSE, Q4W
     Route: 065
  3. PACLITAXEL. [Suspect]
     Active Substance: PACLITAXEL
     Indication: PANCREATIC CARCINOMA METASTATIC
     Dosage: STANDARD DOSE, Q4W
     Route: 065

REACTIONS (1)
  - Dehydration [Unknown]
